FAERS Safety Report 7425448-2 (Version None)
Quarter: 2011Q2

REPORT INFORMATION
  Report Type: 
  Country: None (occurrence: None)
  Receive Date: 20110418
  Receipt Date: 20110418
  Transmission Date: 20111010
  Serious: Yes (Hospitalization)
  Sender: FDA-Public Use
  Company Number: None

PATIENT
  Age: 73 Year
  Sex: Male
  Weight: 80.196 kg

DRUGS (1)
  1. ZD6474 200MG [Suspect]
     Indication: OESOPHAGEAL CARCINOMA
     Dosage: 200MG QD ORALLY
     Route: 048
     Dates: start: 20100830, end: 20101004

REACTIONS (2)
  - TRACHEO-OESOPHAGEAL FISTULA [None]
  - STAPHYLOCOCCAL INFECTION [None]
